FAERS Safety Report 16761241 (Version 1)
Quarter: 2019Q3

REPORT INFORMATION
  Report Type: Spontaneous
  Country: US (occurrence: US)
  Receive Date: 20190830
  Receipt Date: 20190830
  Transmission Date: 20191005
  Serious: No
  Sender: FDA-Public Use
  Company Number: US-ANIPHARMA-2019-US-012910

PATIENT
  Sex: Female

DRUGS (2)
  1. IBRANCE [Suspect]
     Active Substance: PALBOCICLIB
     Indication: BREAST CANCER
     Dosage: 100 MG DAILY FOR 21 DAYS
     Route: 048
     Dates: start: 20190409
  2. ANASTROZOLE. [Suspect]
     Active Substance: ANASTROZOLE
     Indication: PRODUCT USED FOR UNKNOWN INDICATION
     Dosage: DAILY AS PRESCRIBED BY MD
     Route: 048

REACTIONS (2)
  - Decreased appetite [Unknown]
  - Clostridium difficile infection [Recovered/Resolved]
